FAERS Safety Report 8506413-0 (Version None)
Quarter: 2012Q3

REPORT INFORMATION
  Report Type: 
  Country: None (occurrence: None)
  Receive Date: 20120712
  Receipt Date: 20120706
  Transmission Date: 20120928
  Serious: Yes (Other)
  Sender: FDA-Public Use
  Company Number: US-PFIZER INC-2012094304

PATIENT
  Sex: Female
  Weight: 81.179 kg

DRUGS (47)
  1. AMARYL [Concomitant]
     Indication: TYPE 2 DIABETES MELLITUS
     Dosage: 0.5MG DAILY
  2. COMBIVENT [Concomitant]
     Indication: ASTHMA
  3. ATENOLOL [Concomitant]
     Indication: HYPERTENSION
     Dosage: 5 MG
  4. CALCIUM ACETATE [Concomitant]
     Indication: HYPOCALCAEMIA
     Dosage: 667 MG, DAILY
  5. FORADIL [Concomitant]
     Indication: CHRONIC OBSTRUCTIVE PULMONARY DISEASE
     Dosage: 12 UG, 2X/DAY
  6. PLAQUENIL [Concomitant]
     Dosage: 400 MG, (200 MG 2 TABS DAILY)
     Route: 048
  7. LIBRAX [Concomitant]
     Dosage: UNK, 3X/DAY (TAKE ONE THREE TIMES DAILY AS NEEDED)
  8. PROAIR HFA [Concomitant]
     Indication: WHEEZING
     Dosage: UNK, AS NEEDED (1 TO 2 PUFFS EVERY 6 HOURS AS NEEDED)
  9. ALBUTEROL [Concomitant]
     Indication: CHRONIC OBSTRUCTIVE PULMONARY DISEASE
     Dosage: 0.083 %, AS NEEDED (0.083% 1 VIAL Q4-Q6 AS NEEDED)
  10. VITAMIN B-12 [Concomitant]
     Dosage: UNK
  11. LYRICA [Suspect]
     Indication: NERVE INJURY
     Dosage: 150 MG, 2X/DAY
     Route: 048
  12. PROTONIX [Concomitant]
     Indication: GASTROOESOPHAGEAL REFLUX DISEASE
     Dosage: 40 MG, 2X/DAY
  13. PLAQUENIL [Concomitant]
     Indication: SYSTEMIC LUPUS ERYTHEMATOSUS
     Dosage: 200 MG, 2X/DAY
     Route: 048
  14. HYDROCODONE [Concomitant]
     Indication: PAIN
  15. COMBIVENT [Concomitant]
     Indication: CHRONIC OBSTRUCTIVE PULMONARY DISEASE
     Dosage: UNK (2 PUFFS EVERY HOURS AND PRN)
     Route: 048
  16. COMBIVENT [Concomitant]
     Indication: EMPHYSEMA
  17. ALBUTEROL [Concomitant]
     Indication: DYSPNOEA
  18. VITAMIN D [Concomitant]
     Dosage: 50000 UNITS, MONTHLY
  19. FOLIC ACID [Concomitant]
     Dosage: UNK, 1X/DAY (1 TAB DAILY)
  20. CHLORDIAZEPOXIDE HCL W/ CLIDINIUM BROMIDE [Concomitant]
     Indication: GASTROOESOPHAGEAL REFLUX DISEASE
     Dosage: UNK, 3X/DAY
  21. FUROSEMIDE [Concomitant]
     Indication: RENAL FAILURE
     Dosage: 40 MG, DAILY
  22. ERGOCALCIFEROL [Concomitant]
     Dosage: 50,000 UNITS ONCE A MONTH
  23. KLONOPIN [Concomitant]
     Indication: ANXIETY
     Dosage: UNK, AS NEEDED (PRN)
  24. KLONOPIN [Concomitant]
     Indication: PANIC ATTACK
  25. LYRICA [Suspect]
     Indication: FIBROMYALGIA
     Dosage: 75 MG, 4X/DAY
     Route: 048
     Dates: start: 20100601
  26. AMARYL [Concomitant]
     Dosage: 1 MG (1/2 TAB DAILY)
  27. HYDROCODONE [Concomitant]
     Indication: OSTEOARTHRITIS
     Dosage: UNK AS NEEDED (10/325 MG TAKE ONE EVERY 4 HRS AS NEEDED)
  28. ALBUTEROL [Concomitant]
     Indication: ASTHMA
  29. CHLORDIAZEPOXIDE HCL W/ CLIDINIUM BROMIDE [Concomitant]
     Indication: OESOPHAGEAL STENOSIS
     Dosage: 5/2.5 MG, UNK
  30. GLIMEPIRIDE [Concomitant]
     Indication: DIABETES MELLITUS
     Dosage: 0.5 MG, DAILY
  31. ALBUTEROL SULFATE [Concomitant]
     Indication: CHRONIC OBSTRUCTIVE PULMONARY DISEASE
     Dosage: UNK
  32. ALBUTEROL SULFATE [Concomitant]
     Indication: EMPHYSEMA
  33. CLONAZEPAM [Concomitant]
     Dosage: 3 MG, AS NEEDED (1 MG TAKE 3 AT BEDTIME PRN)
  34. PROAIR HFA [Concomitant]
     Indication: COUGH
  35. CYTOXAN [Concomitant]
     Indication: RENAL FAILURE
     Dosage: UNK
  36. PROTONIX [Concomitant]
     Dosage: 40 MG, UNK (40 MG 2 TABS DAILY)
  37. ALBUTEROL [Concomitant]
     Indication: EMPHYSEMA
  38. ALBUTEROL [Concomitant]
     Indication: WHEEZING
  39. POTASSIUM CHLORIDE [Concomitant]
     Indication: HYPOKALAEMIA
     Dosage: 20 MEQ, 1X/DAY
  40. FORADIL [Concomitant]
     Indication: EMPHYSEMA
  41. COMPAZINE [Concomitant]
     Dosage: 5 MG, AS NEEDED (5MG 1 TO 2 TABS DAILY AS NEEDED)
     Route: 048
  42. LYRICA [Suspect]
     Dosage: UNK
     Route: 048
  43. ALTACE [Suspect]
     Indication: HYPERTENSION
     Dosage: 10 MG, 1X/DAY
  44. LASIX [Concomitant]
     Indication: RENAL FAILURE
     Dosage: 40 MG, 1X/DAY (ONCE DAILY EACH MORNING)
     Route: 048
  45. VITAMIN B COMPLEX CAP [Concomitant]
     Dosage: UNK
  46. TENORMIN [Concomitant]
     Dosage: 50 MG, 1X/DAY
     Route: 048
  47. CALCIUM CITRATE [Concomitant]
     Dosage: 669 MG, 3X/DAY

REACTIONS (17)
  - MIGRAINE [None]
  - INTERVERTEBRAL DISC PROTRUSION [None]
  - ANGINA PECTORIS [None]
  - WEIGHT FLUCTUATION [None]
  - WRIST FRACTURE [None]
  - RENAL FAILURE CHRONIC [None]
  - BODY HEIGHT DECREASED [None]
  - ANXIETY [None]
  - WEIGHT INCREASED [None]
  - CEREBROVASCULAR ACCIDENT [None]
  - HIATUS HERNIA [None]
  - PALPITATIONS [None]
  - EUPHORIC MOOD [None]
  - NEPHRITIS [None]
  - HYPOGLYCAEMIA [None]
  - FALL [None]
  - BACK INJURY [None]
